FAERS Safety Report 7504463-4 (Version None)
Quarter: 2011Q2

REPORT INFORMATION
  Report Type: 
  Country: None (occurrence: None)
  Receive Date: 20110525
  Receipt Date: 20080108
  Transmission Date: 20111010
  Serious: Yes (Death, Life-Threatening, Other)
  Sender: FDA-Public Use
  Company Number: US-BAYER-200810765NA

PATIENT
  Age: 74 Year
  Sex: Male
  Weight: 82.993 kg

DRUGS (8)
  1. HEPARIN [Concomitant]
     Dosage: 38,000 UNITS
     Dates: start: 20050621
  2. ATENOLOL [Concomitant]
     Dosage: 75 MG, QD
     Route: 048
  3. DOBUTAMINE HYDROCHLORIDE [Concomitant]
     Dosage: 3 MICROGRAMS
     Route: 042
     Dates: start: 20050621
  4. RED BLOOD CELLS [Concomitant]
     Dosage: 4 U, UNK
     Dates: start: 20050624
  5. VANCOMYCIN [Concomitant]
     Dosage: 1 G, UNK
     Route: 042
     Dates: start: 20050621
  6. GENTAMICIN [Concomitant]
     Dosage: 80 MG, UNK
     Route: 042
  7. TRASYLOL [Suspect]
     Indication: CORONARY ARTERY BYPASS
     Dosage: 200 ML LOADING DOSE FOLLOWED BY 50 ML / HOUR INFUSION
     Route: 042
     Dates: start: 20050621, end: 20050621
  8. CEFUROXIME [Concomitant]
     Dosage: 1.5 G, UNK
     Route: 042
     Dates: start: 20050621

REACTIONS (11)
  - INFECTION [None]
  - FEAR [None]
  - PAIN [None]
  - RENAL FAILURE [None]
  - INJURY [None]
  - ADVERSE EVENT [None]
  - DEATH [None]
  - UNEVALUABLE EVENT [None]
  - DEPRESSION [None]
  - ANXIETY [None]
  - ANHEDONIA [None]
